FAERS Safety Report 8286575-3 (Version None)
Quarter: 2012Q2

REPORT INFORMATION
  Report Type: 
  Country: None (occurrence: None)
  Receive Date: 20120416
  Receipt Date: 20120406
  Transmission Date: 20120825
  Serious: Yes (Life-Threatening)
  Sender: FDA-Public Use
  Company Number: FR-EISAI INC-E3810-05426-SPO-FR

PATIENT
  Sex: Male

DRUGS (9)
  1. FLUINDIONE [Suspect]
     Indication: ATRIAL FIBRILLATION
     Route: 048
     Dates: end: 20120229
  2. ATORVASTATIN [Suspect]
     Indication: HYPERCHOLESTEROLAEMIA
     Route: 048
     Dates: end: 20120229
  3. LASIX [Suspect]
     Route: 048
     Dates: end: 20120229
  4. ASPIRIN [Suspect]
     Indication: ATRIAL FIBRILLATION
     Route: 048
     Dates: end: 20120229
  5. ACETAMINOPHEN [Suspect]
     Indication: PAIN
     Route: 048
  6. REPAGLINIDE [Concomitant]
  7. BISOPROLOL FUMARATE [Suspect]
     Route: 048
     Dates: end: 20120229
  8. LANTUS [Concomitant]
  9. ACIPHEX [Suspect]
     Route: 048
     Dates: end: 20120229

REACTIONS (1)
  - CEREBRAL HAEMATOMA [None]
